FAERS Safety Report 6339376-7 (Version None)
Quarter: 2009Q3

REPORT INFORMATION
  Report Type: 
  Country: None (occurrence: None)
  Receive Date: 20090903
  Receipt Date: 20090825
  Transmission Date: 20100115
  Serious: Yes (Disabling)
  Sender: FDA-Public Use
  Company Number: MX-ELI_LILLY_AND_COMPANY-MX200906001693

PATIENT
  Age: 79 Year
  Sex: Female
  Weight: 50 kg

DRUGS (4)
  1. HUMALOG MIX 75/25 [Suspect]
     Indication: DIABETES MELLITUS
     Dosage: 22 IU, EACH MORNING
     Route: 058
     Dates: start: 20050101
  2. HUMALOG MIX 75/25 [Suspect]
     Dosage: 24 IU, EACH EVENING
     Route: 058
     Dates: start: 20050101
  3. MICARDIS [Concomitant]
     Dosage: 80 MG, 2/D
  4. TEGRETOL [Concomitant]
     Indication: FACIAL PALSY
     Dosage: 100 MG, 2/D
     Route: 065

REACTIONS (7)
  - EAR DISCOMFORT [None]
  - FACIAL PALSY [None]
  - FEEDING DISORDER [None]
  - PAIN [None]
  - RASH [None]
  - SPEECH DISORDER [None]
  - WATER POLLUTION [None]
